FAERS Safety Report 25171061 (Version 2)
Quarter: 2025Q2

REPORT INFORMATION
  Report Type: Spontaneous
  Country: US (occurrence: US)
  Receive Date: 20250408
  Receipt Date: 20250522
  Transmission Date: 20250717
  Serious: No
  Sender: ROCHE
  Company Number: US-ROCHE-10000244994

PATIENT
  Age: 34 Year
  Sex: Female
  Weight: 75.75 kg

DRUGS (3)
  1. XOLAIR [Suspect]
     Active Substance: OMALIZUMAB
     Indication: Chronic spontaneous urticaria
     Route: 058
     Dates: start: 2024
  2. XOLAIR [Suspect]
     Active Substance: OMALIZUMAB
  3. ENSKYCE [Concomitant]
     Active Substance: DESOGESTREL\ETHINYL ESTRADIOL
     Indication: Oral contraception
     Dosage: 0.15MG/.03MG
     Route: 048
     Dates: start: 202409

REACTIONS (6)
  - Product dose omission issue [Unknown]
  - Device defective [Unknown]
  - Device defective [Unknown]
  - Device malfunction [Unknown]
  - Needle issue [Unknown]
  - Pain [Unknown]

NARRATIVE: CASE EVENT DATE: 20250327
